FAERS Safety Report 23943885 (Version 1)
Quarter: 2024Q2

REPORT INFORMATION
  Report Type: Spontaneous
  Country: DE (occurrence: DE)
  Receive Date: 20240606
  Receipt Date: 20240606
  Transmission Date: 20240716
  Serious: Yes (Hospitalization, Other)
  Sender: FDA-Public Use
  Company Number: DE-JNJFOC-20240556663

PATIENT
  Sex: Male
  Weight: 64.7 kg

DRUGS (3)
  1. BORTEZOMIB [Suspect]
     Active Substance: BORTEZOMIB
     Indication: Plasma cell myeloma
     Dosage: 2.14 MILLIGRAM (LAST DOSE BEFORE EVENT : 28-FEB-2022)
     Route: 042
     Dates: start: 20220216
  2. DEXAMETHASONE [Suspect]
     Active Substance: DEXAMETHASONE
     Indication: Plasma cell myeloma
     Dosage: 40 MILLIGRAM (LAST DOSE BEFORE EVENT: 23-FEB-2022)
     Route: 042
     Dates: start: 20220215
  3. DARZALEX [Suspect]
     Active Substance: DARATUMUMAB
     Indication: Plasma cell myeloma
     Dosage: 940.8 MILLIGRAM (LAST DOSE BEFORE EVENT: 22-FEB-2022)
     Route: 042
     Dates: start: 20220215

REACTIONS (2)
  - Cardiac failure [Recovered/Resolved]
  - Pleural effusion [Recovered/Resolved]

NARRATIVE: CASE EVENT DATE: 20220306
